FAERS Safety Report 9050447 (Version 2)
Quarter: 2013Q1

REPORT INFORMATION
  Report Type: Spontaneous
  Country: US (occurrence: US)
  Receive Date: 20130205
  Receipt Date: 20130320
  Transmission Date: 20140127
  Serious: Yes (Life-Threatening)
  Sender: FDA-Public Use
  Company Number: US-JNJFOC-20121209691

PATIENT
  Age: 55 None
  Sex: Female

DRUGS (5)
  1. NUCYNTA ER [Suspect]
     Indication: PAIN
     Route: 048
  2. NUCYNTA ER [Suspect]
     Indication: PAIN
     Dosage: TWICE A DAY
     Route: 048
     Dates: start: 20121208, end: 20121209
  3. TRAMADOL [Concomitant]
     Dosage: 50MG TWICE A DAY
     Route: 065
  4. AMITRIPTYLINE [Concomitant]
     Dosage: 50MG TWICE A DAY
     Route: 065
  5. SOMA [Concomitant]
     Dosage: 350MG THRICE A DAY
     Route: 065

REACTIONS (6)
  - Hypertensive crisis [Recovered/Resolved]
  - Vomiting [Recovered/Resolved]
  - Diarrhoea [Recovered/Resolved]
  - Nausea [Recovered/Resolved]
  - Headache [Unknown]
  - Hyperhidrosis [Recovered/Resolved]
